FAERS Safety Report 11076021 (Version 1)
Quarter: 2015Q2

REPORT INFORMATION
  Report Type: Spontaneous
  Country: IN (occurrence: IN)
  Receive Date: 20150429
  Receipt Date: 20150429
  Transmission Date: 20150821
  Serious: Yes (Other)
  Sender: FDA-Public Use
  Company Number: IN-AUROBINDO-AUR-APL-2015-03633

PATIENT
  Age: 22 Year
  Sex: Female

DRUGS (1)
  1. FLUCONAZOLE 150MG [Suspect]
     Active Substance: FLUCONAZOLE
     Indication: VULVOVAGINAL CANDIDIASIS
     Dosage: 150 MG, ONCE A MONTH
     Route: 048

REACTIONS (8)
  - Skin hyperpigmentation [Unknown]
  - Skin lesion [Unknown]
  - Skin burning sensation [Unknown]
  - Erythema [Recovering/Resolving]
  - Pruritus [Unknown]
  - Macule [Recovering/Resolving]
  - Rash [Recovering/Resolving]
  - Drug eruption [Unknown]
